FAERS Safety Report 9618625 (Version 1)
Quarter: 2013Q4

REPORT INFORMATION
  Report Type: Spontaneous
  Country: US (occurrence: US)
  Receive Date: 20131014
  Receipt Date: 20131014
  Transmission Date: 20140711
  Serious: No
  Sender: FDA-Public Use
  Company Number: US-PFIZER INC-2013292578

PATIENT
  Age: 53 Year
  Sex: Female
  Weight: 78.46 kg

DRUGS (2)
  1. LYRICA [Suspect]
     Indication: RESTLESS LEGS SYNDROME
     Dosage: 50 MG, 2X/DAY
     Route: 048
  2. INSULIN [Concomitant]
     Indication: DIABETES MELLITUS
     Dosage: UNK

REACTIONS (2)
  - Off label use [Unknown]
  - Blood glucose increased [Unknown]
